FAERS Safety Report 7222214-8 (Version None)
Quarter: 2011Q1

REPORT INFORMATION
  Report Type: 
  Country: None (occurrence: None)
  Receive Date: 20110103
  Receipt Date: 20101216
  Transmission Date: 20110831
  Serious: Yes (Death)
  Sender: FDA-Public Use
  Company Number: 1000017910

PATIENT
  Age: 76 Year
  Sex: Female

DRUGS (5)
  1. KARVEZIDE (IRBESARTAN   HYDROCHLOROTHIAZIDE) (TABLETS) (IRBESARTAN  HY [Concomitant]
  2. KARVEZIDE (IRBESARTAN) [Concomitant]
  3. THYMANAX (AGOMELATINE) (25 MILLIGRAM, TABLETS) [Suspect]
     Indication: MAJOR DEPRESSION
     Dates: start: 20101111, end: 20101124
  4. LANSOPRAZOLE [Concomitant]
  5. ESCITALOPRAM [Suspect]
     Indication: MAJOR DEPRESSION
     Dosage: 5 MG (5 MG,  1 IN 1 D), ORAL
     Route: 048
     Dates: start: 20101111, end: 20101124

REACTIONS (8)
  - VOMITING [None]
  - HYPERGLYCAEMIA [None]
  - HYPERCREATINAEMIA [None]
  - TONIC CLONIC MOVEMENTS [None]
  - AZOTAEMIA [None]
  - ELECTROCARDIOGRAM QT PROLONGED [None]
  - CONSTIPATION [None]
  - HYPERNATRAEMIA [None]
